FAERS Safety Report 8204489-1 (Version None)
Quarter: 2012Q1

REPORT INFORMATION
  Report Type: 
  Country: None (occurrence: None)
  Receive Date: 20120313
  Receipt Date: 20120309
  Transmission Date: 20120608
  Serious: Yes (Other)
  Sender: FDA-Public Use
  Company Number: GB-SANOFI-AVENTIS-2012SA016342

PATIENT
  Age: 58 Year
  Sex: Female
  Weight: 79 kg

DRUGS (1)
  1. TRIAMCINOLONE ACETONIDE [Suspect]
     Route: 065
     Dates: start: 20111003, end: 20111004

REACTIONS (1)
  - CUSHING'S SYNDROME [None]
